APPROVED DRUG PRODUCT: OXCARBAZEPINE
Active Ingredient: OXCARBAZEPINE
Strength: 300MG/5ML
Dosage Form/Route: SUSPENSION;ORAL
Application: A201193 | Product #001
Applicant: HIKMA PHARMACEUTICALS USA INC
Approved: Oct 3, 2012 | RLD: No | RS: No | Type: DISCN